FAERS Safety Report 13807557 (Version 2)
Quarter: 2017Q3

REPORT INFORMATION
  Report Type: Spontaneous
  Country: JP (occurrence: JP)
  Receive Date: 20170728
  Receipt Date: 20170809
  Transmission Date: 20171127
  Serious: Yes (Other)
  Sender: FDA-Public Use
  Company Number: JP-ELI_LILLY_AND_COMPANY-JP201707008925

PATIENT
  Age: 54 Year
  Sex: Female

DRUGS (5)
  1. GEMZAR [Suspect]
     Active Substance: GEMCITABINE HYDROCHLORIDE
     Indication: TRANSITIONAL CELL CARCINOMA
     Dosage: UNK
     Route: 042
  2. TACROLIMUS. [Concomitant]
     Active Substance: TACROLIMUS
  3. EVEROLIMUS [Concomitant]
     Active Substance: EVEROLIMUS
  4. CISPLATIN. [Suspect]
     Active Substance: CISPLATIN
     Indication: TRANSITIONAL CELL CARCINOMA
     Dosage: UNK
     Route: 065
  5. METHYLPREDNISOLONE                 /00049602/ [Concomitant]
     Active Substance: METHYLPREDNISOLONE

REACTIONS (2)
  - Renal salt-wasting syndrome [Recovered/Resolved]
  - Urinary tract infection [Recovered/Resolved]
